FAERS Safety Report 6940499-X (Version None)
Quarter: 2010Q3

REPORT INFORMATION
  Report Type: 
  Country: None (occurrence: None)
  Receive Date: 20100825
  Receipt Date: 20100816
  Transmission Date: 20110219
  Serious: Yes (Disabling, Other)
  Sender: FDA-Public Use
  Company Number: US-ASTRAZENECA-2010SE30259

PATIENT
  Age: 50 Year
  Sex: Male
  Weight: 90.7 kg

DRUGS (7)
  1. SEROQUEL XR [Suspect]
     Indication: DEPRESSION
     Route: 048
     Dates: start: 20100501, end: 20100601
  2. METOPROLOL TARTRATE [Concomitant]
     Indication: HYPERTENSION
     Route: 048
  3. NEURONTIN [Concomitant]
     Route: 048
  4. PROZAC [Concomitant]
     Route: 048
  5. TRAZODONE HCL [Concomitant]
     Indication: SLEEP DISORDER
     Dosage: 1-2 DF, QHS
     Route: 048
  6. OXAPROZIN [Concomitant]
     Route: 048
  7. TOPAMAX [Concomitant]
     Route: 048

REACTIONS (5)
  - CONTUSION [None]
  - DIZZINESS [None]
  - FALL [None]
  - FOOT FRACTURE [None]
  - MUSCLE DISORDER [None]
